FAERS Safety Report 5723866-1 (Version None)
Quarter: 2008Q2

REPORT INFORMATION
  Report Type: 
  Country: None (occurrence: None)
  Receive Date: 20080429
  Receipt Date: 20080429
  Transmission Date: 20081010
  Serious: Yes (Hospitalization)
  Sender: FDA-Public Use
  Company Number: None

PATIENT
  Age: 69 Year
  Sex: Male

DRUGS (3)
  1. VORICONAZOLE 200 MG [Suspect]
     Indication: BRONCHOPULMONARY ASPERGILLOSIS ALLERGIC
     Dosage: 200 MG EVERY 12 HOURS PO
     Route: 048
     Dates: start: 20070719, end: 20070726
  2. PREDNISONE TAB [Suspect]
     Indication: BRONCHOPULMONARY ASPERGILLOSIS ALLERGIC
     Dosage: 40, 30, 20, 10 MG DAILY PO
     Route: 048
     Dates: start: 20070719, end: 20070802
  3. PROMETHAZINE W/ CODEINE [Concomitant]

REACTIONS (1)
  - HALLUCINATIONS, MIXED [None]
